FAERS Safety Report 10543292 (Version 1)
Quarter: 2014Q4

REPORT INFORMATION
  Report Type: Spontaneous
  Country: US (occurrence: None)
  Receive Date: 20141024
  Receipt Date: 20141024
  Transmission Date: 20150529
  Serious: Yes (Other)
  Sender: FDA-Public Use
  Company Number: None

PATIENT
  Age: 57 Year
  Sex: Female
  Weight: 80.74 kg

DRUGS (2)
  1. HYDROCODONE/IBUPROFEN [Suspect]
     Active Substance: HYDROCODONE\IBUPROFEN
     Indication: BACK PAIN
     Dosage: 1 TABLET EVERY 12 HOURS
     Route: 048
     Dates: start: 20140821, end: 20140930
  2. ZOLPIDEM [Suspect]
     Active Substance: ZOLPIDEM\ZOLPIDEM TARTRATE
     Indication: INSOMNIA
     Dosage: 1 PILL
     Route: 048
     Dates: start: 20140331, end: 20140331

REACTIONS (3)
  - Product quality issue [None]
  - Drug effect variable [None]
  - Drug ineffective [None]

NARRATIVE: CASE EVENT DATE: 20141007
